FAERS Safety Report 8465158-6 (Version None)
Quarter: 2012Q2

REPORT INFORMATION
  Report Type: 
  Country: None (occurrence: None)
  Receive Date: 20120626
  Receipt Date: 20120620
  Transmission Date: 20120825
  Serious: Yes (Other)
  Sender: FDA-Public Use
  Company Number: BR-PFIZER INC-2012149848

PATIENT
  Sex: Female

DRUGS (1)
  1. PRISTIQ [Suspect]
     Dosage: UNK
     Route: 048
     Dates: start: 20090101

REACTIONS (6)
  - FEELING ABNORMAL [None]
  - WEIGHT INCREASED [None]
  - EMOTIONAL DISORDER [None]
  - OBESITY [None]
  - SELF ESTEEM DECREASED [None]
  - HYPERHIDROSIS [None]
